FAERS Safety Report 16958343 (Version 1)
Quarter: 2019Q4

REPORT INFORMATION
  Report Type: Spontaneous
  Country: US (occurrence: US)
  Receive Date: 20191024
  Receipt Date: 20191024
  Transmission Date: 20200122
  Serious: No
  Sender: FDA-Public Use
  Company Number: US-TEVA-2019-US-1126974

PATIENT
  Sex: Female
  Weight: 68.4 kg

DRUGS (4)
  1. PREGABALIN TEVA [Suspect]
     Active Substance: PREGABALIN
     Indication: NEUROPATHY PERIPHERAL
  2. PREGABALIN TEVA [Suspect]
     Active Substance: PREGABALIN
     Indication: PAIN
  3. PREGABALIN TEVA [Suspect]
     Active Substance: PREGABALIN
     Indication: BACK PAIN
     Dosage: 450 MILLIGRAM DAILY; 225 MG, TWO TIMES A DAY, BY MOUTH
     Route: 048
     Dates: start: 20190822
  4. LYRICA [Suspect]
     Active Substance: PREGABALIN
     Indication: FIBROMYALGIA
     Dosage: 450 MILLIGRAM DAILY;
     Dates: start: 2006

REACTIONS (2)
  - Nasopharyngitis [Unknown]
  - Body height decreased [Unknown]
